FAERS Safety Report 7076448-6 (Version None)
Quarter: 2010Q4

REPORT INFORMATION
  Report Type: 
  Country: None (occurrence: None)
  Receive Date: 20101101
  Receipt Date: 20101018
  Transmission Date: 20110411
  Serious: Yes (Hospitalization, Other)
  Sender: FDA-Public Use
  Company Number: US-ELI_LILLY_AND_COMPANY-US201010006006

PATIENT
  Age: 18 Month
  Sex: Male

DRUGS (2)
  1. PROZAC [Suspect]
     Dosage: 20 MG, 2/D
  2. OMEPRAZOLE [Concomitant]
     Indication: GASTROOESOPHAGEAL REFLUX DISEASE

REACTIONS (17)
  - ACCIDENTAL OVERDOSE [None]
  - DECREASED ACTIVITY [None]
  - DRUG WITHDRAWAL SYNDROME [None]
  - DRY MOUTH [None]
  - DYSPNOEA [None]
  - DYSURIA [None]
  - EXCORIATION [None]
  - EYES SUNKEN [None]
  - FLATULENCE [None]
  - FREQUENT BOWEL MOVEMENTS [None]
  - HYPERHIDROSIS [None]
  - IRRITABILITY [None]
  - MEDICATION ERROR [None]
  - PALLOR [None]
  - RASH [None]
  - TACHYCARDIA [None]
  - WEIGHT DECREASED [None]
